FAERS Safety Report 7738400-4 (Version None)
Quarter: 2011Q3

REPORT INFORMATION
  Report Type: 
  Country: None (occurrence: None)
  Receive Date: 20110908
  Receipt Date: 20110830
  Transmission Date: 20111222
  Serious: Yes (Other)
  Sender: FDA-Public Use
  Company Number: PHHY2011US51411

PATIENT
  Sex: Female

DRUGS (7)
  1. OMEPRAZOLE [Concomitant]
     Dosage: UNK UKN, UNK
  2. PRILOSEC [Concomitant]
     Dosage: UNK UKN, UNK
     Route: 048
  3. EXJADE [Suspect]
     Indication: HAEMOCHROMATOSIS
     Dosage: 2000 MG, DAILY
     Route: 048
     Dates: start: 20110609, end: 20110811
  4. XANAX [Concomitant]
     Dosage: UNK UKN, PRN
     Route: 048
  5. SYNTHROID [Concomitant]
     Dosage: UNK UKN, UNK
  6. EXJADE [Suspect]
     Indication: MYELODYSPLASTIC SYNDROME
     Dosage: 2000 MG, DAILY
     Route: 048
     Dates: start: 20110501
  7. DIOVAN [Concomitant]
     Dosage: UNK UKN, UNK
     Route: 048

REACTIONS (10)
  - OEDEMA PERIPHERAL [None]
  - FEELING ABNORMAL [None]
  - ABDOMINAL PAIN UPPER [None]
  - ERYTHEMA [None]
  - TINNITUS [None]
  - ASTHENIA [None]
  - HEARING IMPAIRED [None]
  - DIARRHOEA [None]
  - NASOPHARYNGITIS [None]
  - MUSCLE SPASMS [None]
